FAERS Safety Report 6642860-X (Version None)
Quarter: 2010Q1

REPORT INFORMATION
  Report Type: 
  Country: None (occurrence: None)
  Receive Date: 20100319
  Receipt Date: 20100310
  Transmission Date: 20100710
  Serious: Yes (Other)
  Sender: FDA-Public Use
  Company Number: US-AMGEN-QUU393801

PATIENT
  Sex: Female
  Weight: 112 kg

DRUGS (1)
  1. ENBREL [Suspect]
     Indication: RHEUMATOID ARTHRITIS
     Route: 058
     Dates: start: 20090708

REACTIONS (4)
  - ATELECTASIS [None]
  - BLISTER [None]
  - DRUG INEFFECTIVE [None]
  - DYSPNOEA [None]
